FAERS Safety Report 8350250-7 (Version None)
Quarter: 2012Q2

REPORT INFORMATION
  Report Type: 
  Country: None (occurrence: None)
  Receive Date: 20120510
  Receipt Date: 20120507
  Transmission Date: 20120825
  Serious: Yes (Death, Other)
  Sender: FDA-Public Use
  Company Number: JP-BAYER-2012-010336

PATIENT
  Age: 77 Year
  Sex: Female
  Weight: 56 kg

DRUGS (4)
  1. BARACLUDE [Concomitant]
     Indication: HEPATITIS B
     Dosage: UNK
     Route: 048
     Dates: start: 20070130, end: 20120501
  2. AMLODIPINE BESYLATE [Concomitant]
     Indication: HYPERTENSION
     Dosage: UNK
     Route: 048
     Dates: end: 20120501
  3. NEXAVAR [Suspect]
     Dosage: UNK
     Route: 048
     Dates: start: 20120209, end: 20120307
  4. NEXAVAR [Suspect]
     Indication: HEPATIC NEOPLASM MALIGNANT
     Dosage: DAILY DOSE 800 MG
     Route: 048
     Dates: start: 20120112, end: 20120208

REACTIONS (5)
  - METASTASES TO LUNG [None]
  - LIVER DISORDER [None]
  - RASH [None]
  - LOW DENSITY LIPOPROTEIN INCREASED [None]
  - DECREASED APPETITE [None]
